FAERS Safety Report 6262784-X (Version None)
Quarter: 2009Q3

REPORT INFORMATION
  Report Type: 
  Country: None (occurrence: None)
  Receive Date: 20090709
  Receipt Date: 20090624
  Transmission Date: 20100115
  Serious: Yes (Other)
  Sender: FDA-Public Use
  Company Number: FR-GENENTECH-286123

PATIENT
  Sex: Male

DRUGS (1)
  1. LUCENTIS [Suspect]
     Indication: DRUG USE FOR UNKNOWN INDICATION
     Route: 031

REACTIONS (2)
  - ANGIOPLASTY [None]
  - STENT OCCLUSION [None]
